FAERS Safety Report 8589216-0 (Version None)
Quarter: 2012Q3

REPORT INFORMATION
  Report Type: 
  Country: None (occurrence: None)
  Receive Date: 20120813
  Receipt Date: 20120807
  Transmission Date: 20120928
  Serious: Yes (Hospitalization, Other)
  Sender: FDA-Public Use
  Company Number: JP-VERTEX PHARMACEUTICALS INC.-AE-2012-004084

PATIENT
  Age: 68 Year
  Sex: Female

DRUGS (16)
  1. REBETOL [Concomitant]
     Dates: start: 20120518, end: 20120527
  2. REBETOL [Concomitant]
     Route: 048
     Dates: end: 20120330
  3. RABEPRAZOLE SODIUM [Concomitant]
     Route: 048
  4. GASMOTIN [Concomitant]
     Route: 048
  5. PAXIL [Concomitant]
     Route: 048
  6. TELAVIC [Suspect]
     Indication: HEPATITIS C
     Route: 048
     Dates: start: 20120208
  7. REBETOL [Concomitant]
     Route: 048
     Dates: start: 20120331, end: 20120419
  8. REBETOL [Concomitant]
     Route: 048
     Dates: start: 20120317, end: 20120321
  9. REBETOL [Concomitant]
     Route: 048
     Dates: start: 20120528, end: 20120725
  10. PEG-INTRON [Concomitant]
     Route: 058
     Dates: start: 20120208, end: 20120725
  11. REBETOL [Concomitant]
     Route: 048
     Dates: start: 20120322, end: 20120324
  12. SEDEKOPAN [Concomitant]
     Route: 048
  13. TELAVIC [Suspect]
     Route: 048
     Dates: start: 20120223, end: 20120324
  14. REBETOL [Concomitant]
     Indication: HEPATITIS C
     Route: 048
     Dates: start: 20120208, end: 20120317
  15. REBETOL [Concomitant]
     Route: 048
     Dates: start: 20120423, end: 20120511
  16. REBETOL [Concomitant]
     Route: 048
     Dates: start: 20120512, end: 20120515

REACTIONS (3)
  - DEPRESSIVE SYMPTOM [None]
  - DECREASED APPETITE [None]
  - ANAEMIA [None]
